FAERS Safety Report 8220928-4 (Version None)
Quarter: 2012Q1

REPORT INFORMATION
  Report Type: 
  Country: None (occurrence: None)
  Receive Date: 20120320
  Receipt Date: 20120308
  Transmission Date: 20120608
  Serious: Yes (Life-Threatening, Hospitalization, Disabling, Other)
  Sender: FDA-Public Use
  Company Number: BR-BRISTOL-MYERS SQUIBB COMPANY-16402760

PATIENT
  Age: 74 Year
  Sex: Male

DRUGS (2)
  1. ERBITUX [Suspect]
     Indication: LUNG CARCINOMA CELL TYPE UNSPECIFIED STAGE IV
     Dosage: LAST INF: 08FEB2012 TOTAL INF:840MG
     Route: 042
     Dates: start: 20110706, end: 20120208
  2. ERBITUX [Suspect]
     Indication: NON-SMALL CELL LUNG CANCER
     Dosage: LAST INF: 08FEB2012 TOTAL INF:840MG
     Route: 042
     Dates: start: 20110706, end: 20120208

REACTIONS (1)
  - CEREBROVASCULAR ACCIDENT [None]
